FAERS Safety Report 11152903 (Version 1)
Quarter: 2015Q2

REPORT INFORMATION
  Report Type: Spontaneous
  Country: JP (occurrence: JP)
  Receive Date: 20150601
  Receipt Date: 20150601
  Transmission Date: 20150821
  Serious: Yes (Other)
  Sender: FDA-Public Use
  Company Number: JP-JNJFOC-20150519415

PATIENT

DRUGS (1)
  1. RISPERDAL [Suspect]
     Active Substance: RISPERIDONE
     Indication: AUTISM SPECTRUM DISORDER
     Route: 048

REACTIONS (5)
  - Drug administered to patient of inappropriate age [Unknown]
  - Product use issue [Unknown]
  - Surgery [Unknown]
  - Nystagmus [Unknown]
  - Tremor [Unknown]
